FAERS Safety Report 21408088 (Version 1)
Quarter: 2022Q4

REPORT INFORMATION
  Report Type: Spontaneous
  Country: US (occurrence: US)
  Receive Date: 20221004
  Receipt Date: 20221004
  Transmission Date: 20230113
  Serious: No
  Sender: FDA-Public Use
  Company Number: US-ELI_LILLY_AND_COMPANY-US202209012092

PATIENT
  Sex: Male

DRUGS (1)
  1. BAQSIMI [Suspect]
     Active Substance: GLUCAGON
     Indication: Blood glucose decreased
     Dosage: 3 MG, UNKNOWN (TWO POWDER)
     Route: 065
     Dates: start: 20210203

REACTIONS (3)
  - Blood glucose increased [Unknown]
  - Taste disorder [Unknown]
  - Parosmia [Unknown]
